FAERS Safety Report 16883810 (Version 2)
Quarter: 2020Q1

REPORT INFORMATION
  Report Type: Spontaneous
  Country: CA (occurrence: CA)
  Receive Date: 20191004
  Receipt Date: 20200130
  Transmission Date: 20200409
  Serious: Yes (Other)
  Sender: FDA-Public Use
  Company Number: CA-TEVA-2019-CA-1116150

PATIENT
  Age: 16 Year
  Sex: Male

DRUGS (7)
  1. BLEOMYCIN SULFATE FOR INJECTION USP [Suspect]
     Active Substance: BLEOMYCIN SULFATE
     Indication: TERATOMA
     Route: 065
  2. COSMEGEN [Suspect]
     Active Substance: DACTINOMYCIN
     Indication: PRODUCT USED FOR UNKNOWN INDICATION
     Route: 065
  3. BLEOMYCIN SULFATE FOR INJECTION USP [Suspect]
     Active Substance: BLEOMYCIN SULFATE
     Indication: PRODUCT USED FOR UNKNOWN INDICATION
  4. DACTINOMYCIN [Suspect]
     Active Substance: DACTINOMYCIN
     Indication: TERATOMA
     Route: 065
  5. VINBLASTINE SULFATE INJECTION [Suspect]
     Active Substance: VINBLASTINE SULFATE
     Indication: TERATOMA
     Route: 065
  6. CISPLATIN. [Suspect]
     Active Substance: CISPLATIN
     Indication: TERATOMA
     Route: 065
  7. CYCLOPHOSPHAMIDE. [Suspect]
     Active Substance: CYCLOPHOSPHAMIDE
     Indication: TERATOMA
     Route: 065

REACTIONS (4)
  - Off label use [Unknown]
  - Acute lymphocytic leukaemia [Unknown]
  - Second primary malignancy [Unknown]
  - Bone marrow failure [Unknown]
